FAERS Safety Report 19896726 (Version 1)
Quarter: 2021Q3

REPORT INFORMATION
  Report Type: Spontaneous
  Country: US (occurrence: US)
  Receive Date: 20210930
  Receipt Date: 20210930
  Transmission Date: 20211014
  Serious: No
  Sender: FDA-Public Use
  Company Number: US-UCBSA-2021046237

PATIENT
  Age: 39 Year
  Sex: Male

DRUGS (2)
  1. NEUPRO [Suspect]
     Active Substance: ROTIGOTINE
     Indication: OFF LABEL USE
  2. NEUPRO [Suspect]
     Active Substance: ROTIGOTINE
     Indication: AUTONOMIC NERVOUS SYSTEM IMBALANCE
     Dosage: 2MG DAILY

REACTIONS (2)
  - Off label use [Unknown]
  - Device adhesion issue [Unknown]

NARRATIVE: CASE EVENT DATE: 20210907
